FAERS Safety Report 8309231-1 (Version None)
Quarter: 2012Q2

REPORT INFORMATION
  Report Type: 
  Country: None (occurrence: None)
  Receive Date: 20120424
  Receipt Date: 20120416
  Transmission Date: 20120825
  Serious: Yes (Hospitalization)
  Sender: FDA-Public Use
  Company Number: JP-MERCK-1204USA02959

PATIENT
  Age: 65 Year
  Sex: Female

DRUGS (9)
  1. SELBEX [Concomitant]
     Route: 048
  2. ETODOLAC [Concomitant]
     Route: 048
  3. RHEUMATREX [Concomitant]
     Indication: RHEUMATOID ARTHRITIS
     Route: 048
  4. FOSAMAX [Suspect]
     Indication: OSTEOPOROSIS
     Route: 048
  5. FOSAMAX [Suspect]
     Route: 048
  6. OPALMON [Concomitant]
     Route: 048
  7. PREDNISOLONE [Concomitant]
     Indication: RHEUMATOID ARTHRITIS
     Route: 048
  8. FOLIAMIN [Concomitant]
     Route: 048
  9. DICLOFENAC SODIUM [Concomitant]
     Route: 065

REACTIONS (1)
  - FEMUR FRACTURE [None]
